FAERS Safety Report 8025357-4 (Version None)
Quarter: 2012Q1

REPORT INFORMATION
  Report Type: 
  Country: None (occurrence: None)
  Receive Date: 20120105
  Receipt Date: 20111226
  Transmission Date: 20120608
  Serious: Yes (Life-Threatening)
  Sender: FDA-Public Use
  Company Number: FR-BAXTER-2012BH000050

PATIENT
  Age: 5 Year
  Sex: Male
  Weight: 18 kg

DRUGS (7)
  1. GLEEVEC [Suspect]
     Indication: ACUTE MYELOID LEUKAEMIA
     Route: 048
     Dates: start: 20111013, end: 20111021
  2. CERUBIDINE [Suspect]
     Indication: ACUTE MYELOID LEUKAEMIA
     Route: 042
     Dates: start: 20111006, end: 20111013
  3. METHOTREXATE [Suspect]
     Indication: ACUTE MYELOID LEUKAEMIA
     Route: 037
     Dates: start: 20111003, end: 20111014
  4. CYTARABINE [Suspect]
     Indication: ACUTE MYELOID LEUKAEMIA
     Route: 037
     Dates: start: 20111010, end: 20111014
  5. KIDROLASE [Suspect]
     Indication: ACUTE MYELOID LEUKAEMIA
     Route: 030
     Dates: start: 20111006, end: 20111014
  6. CYCLOPHOSPHAMIDE [Suspect]
     Indication: ACUTE MYELOID LEUKAEMIA
     Route: 042
     Dates: start: 20111006, end: 20111001
  7. VINCRISTINE SULFATE [Suspect]
     Indication: ACUTE MYELOID LEUKAEMIA
     Route: 042
     Dates: start: 20111006, end: 20111013

REACTIONS (2)
  - GENERALISED OEDEMA [None]
  - SEPSIS [None]
